FAERS Safety Report 4392622-1 (Version None)
Quarter: 2004Q3

REPORT INFORMATION
  Report Type: 
  Country: None (occurrence: None)
  Receive Date: 20040702
  Receipt Date: 20040625
  Transmission Date: 20050211
  Serious: Yes (Disabling)
  Sender: FDA-Public Use
  Company Number: 805#1#2004-00020

PATIENT
  Age: 50 Year
  Sex: Female

DRUGS (4)
  1. ALPROSTADIL [Suspect]
     Indication: FACIAL PALSY
     Dosage: 1.80 MCG (80MCG 1 IN 1 DAY(S))
     Route: 041
  2. ADENOSIN -5-TRIPHOSPHATE-SODIUM (ADENOSINE TRIPHOSPHATE, DISODIUM SALT [Concomitant]
  3. MECOBALAMIN (MECOBALAMIN) [Concomitant]
  4. PREDNISOLON-ACETATE (PREDNISOLONE) [Concomitant]

REACTIONS (1)
  - PLATELET COUNT DECREASED [None]
